FAERS Safety Report 4405157-4 (Version None)
Quarter: 2004Q3

REPORT INFORMATION
  Report Type: 
  Country: None (occurrence: None)
  Receive Date: 20040723
  Receipt Date: 20031020
  Transmission Date: 20050211
  Serious: Yes (Other)
  Sender: FDA-Public Use
  Company Number: US-BRISTOL-MYERS SQUIBB COMPANY-12415345

PATIENT
  Age: 43 Year
  Sex: Male
  Weight: 111 kg

DRUGS (2)
  1. MAXIPIME [Suspect]
     Indication: INFECTION
     Route: 042
     Dates: start: 20030902, end: 20030927
  2. VANCOMYCIN [Suspect]
     Indication: INFECTION
     Dates: start: 20030902

REACTIONS (1)
  - NEUTROPENIA [None]
